FAERS Safety Report 4448859-6 (Version None)
Quarter: 2004Q3

REPORT INFORMATION
  Report Type: 
  Country: None (occurrence: None)
  Receive Date: 20040909
  Receipt Date: 20040823
  Transmission Date: 20050211
  Serious: Yes (Other)
  Sender: FDA-Public Use
  Company Number: USA040876220

PATIENT
  Age: 65 Year
  Sex: Female

DRUGS (7)
  1. HUMULIN N [Suspect]
     Indication: DIABETES MELLITUS
     Dates: start: 19970101, end: 20030101
  2. UNIRETIC [Concomitant]
  3. CALCITRIOL [Concomitant]
  4. ASPIRIN [Concomitant]
  5. OSCAL (CALCIUM CARBONATE) [Concomitant]
  6. SYNTHROID [Concomitant]
  7. HYPOTHYROID [Concomitant]

REACTIONS (2)
  - CEREBROVASCULAR ACCIDENT [None]
  - PHARMACEUTICAL PRODUCT COMPLAINT [None]
